FAERS Safety Report 25067572 (Version 1)
Quarter: 2025Q1

REPORT INFORMATION
  Report Type: Spontaneous
  Country: US (occurrence: US)
  Receive Date: 20250312
  Receipt Date: 20250312
  Transmission Date: 20250409
  Serious: No
  Sender: BIOGEN
  Company Number: US-BIOGEN-2025BI01303583

PATIENT
  Sex: Female

DRUGS (11)
  1. TYSABRI [Suspect]
     Active Substance: NATALIZUMAB
     Indication: Product used for unknown indication
     Route: 050
  2. B12 [Concomitant]
     Route: 050
  3. VITAMIN D3 [Concomitant]
     Active Substance: CHOLECALCIFEROL
     Route: 050
  4. LORATADINE [Concomitant]
     Active Substance: LORATADINE
     Route: 050
  5. MELATONIN [Concomitant]
     Active Substance: MELATONIN
     Route: 050
  6. FAMOTIDINE [Concomitant]
     Active Substance: FAMOTIDINE
     Route: 050
  7. BUPROPION [Concomitant]
     Active Substance: BUPROPION
     Route: 050
  8. OXYBUTYNIN [Concomitant]
     Active Substance: OXYBUTYNIN
     Route: 050
  9. LIPITOR [Concomitant]
     Active Substance: ATORVASTATIN CALCIUM
     Route: 050
  10. DEPO-PROVERA [Concomitant]
     Active Substance: MEDROXYPROGESTERONE ACETATE
     Route: 050
  11. MEDROL [Concomitant]
     Active Substance: METHYLPREDNISOLONE
     Route: 050

REACTIONS (1)
  - Drug ineffective [Unknown]
